FAERS Safety Report 12848149 (Version 1)
Quarter: 2016Q4

REPORT INFORMATION
  Report Type: Spontaneous
  Country: US (occurrence: US)
  Receive Date: 20161014
  Receipt Date: 20161014
  Transmission Date: 20170207
  Serious: No
  Sender: FDA-Public Use
  Company Number: US-JNJFOC-20160714007

PATIENT
  Age: 38 Year
  Sex: Male
  Weight: 108.86 kg

DRUGS (1)
  1. TYLENOL EXTRA STRENGTH [Suspect]
     Active Substance: ACETAMINOPHEN
     Indication: PRODUCT USED FOR UNKNOWN INDICATION
     Dosage: 4 CAPLETS. AT 6 AM TOOK 2, THEN WHEN WOKE UP AT 7AM  TOOK 2??MORE INSTEAD OF MY STOMACH PILLS
     Route: 048

REACTIONS (1)
  - Extra dose administered [Unknown]
